FAERS Safety Report 4853874-4 (Version None)
Quarter: 2005Q4

REPORT INFORMATION
  Report Type: 
  Country: None (occurrence: None)
  Receive Date: 20051125
  Receipt Date: 20050321
  Transmission Date: 20060501
  Serious: Yes (Disabling)
  Sender: FDA-Public Use
  Company Number: US-JNJFOC-20050305330

PATIENT
  Age: 68 Year
  Sex: Female

DRUGS (4)
  1. LEVAQUIN [Suspect]
     Indication: INFECTION PROPHYLAXIS
     Dosage: 500 MG, 1IN 1 DAY, ORAL
     Route: 048
     Dates: start: 20040401
  2. LEVAQUIN [Suspect]
     Indication: INFECTION PROPHYLAXIS
     Dosage: INTRAVENOUS
     Route: 042
     Dates: start: 20040301, end: 20040301
  3. LOTENSIN [Concomitant]
  4. ALDACTONE [Concomitant]

REACTIONS (2)
  - TENDON RUPTURE [None]
  - TENDONITIS [None]
